FAERS Safety Report 10499817 (Version 2)
Quarter: 2014Q4

REPORT INFORMATION
  Report Type: Spontaneous
  Country: US (occurrence: US)
  Receive Date: 20141006
  Receipt Date: 20141006
  Transmission Date: 20150528
  Serious: No
  Sender: FDA-Public Use
  Company Number: US-AMGEN INC.-USASP2014047002

PATIENT
  Sex: Female
  Weight: 70.3 kg

DRUGS (3)
  1. ASPIRIN                            /00002701/ [Concomitant]
     Active Substance: ASPIRIN
     Indication: ANTICOAGULANT THERAPY
     Dosage: 81 MG, QD
     Route: 048
  2. PROLIA [Suspect]
     Active Substance: DENOSUMAB
     Indication: PRODUCT USED FOR UNKNOWN INDICATION
     Dosage: 60 MG, Q6MO
     Route: 058
     Dates: start: 20140403
  3. ZOCOR [Concomitant]
     Active Substance: SIMVASTATIN
     Indication: BLOOD CHOLESTEROL DECREASED
     Dosage: 20 MG, QD
     Route: 048
     Dates: start: 2007

REACTIONS (7)
  - Discomfort [Unknown]
  - Oral infection [Unknown]
  - Pain [Unknown]
  - Tooth disorder [Unknown]
  - Tooth loss [Unknown]
  - Oral disorder [Unknown]
  - Oral pain [Unknown]

NARRATIVE: CASE EVENT DATE: 20140409
